FAERS Safety Report 13601698 (Version 3)
Quarter: 2017Q2

REPORT INFORMATION
  Report Type: Spontaneous
  Country: JP (occurrence: JP)
  Receive Date: 20170601
  Receipt Date: 20170615
  Transmission Date: 20170830
  Serious: Yes (Death)
  Sender: FDA-Public Use
  Company Number: JP-JNJFOC-20170529306

PATIENT
  Age: 82 Year
  Sex: Female
  Weight: 62.7 kg

DRUGS (14)
  1. CLEACTOR [Suspect]
     Active Substance: MONTEPLASE
     Indication: PULMONARY EMBOLISM
     Route: 042
     Dates: start: 20170521, end: 20170521
  2. HEPARIN [Concomitant]
     Active Substance: HEPARIN SODIUM
     Route: 042
     Dates: start: 20170516
  3. EDIROL [Suspect]
     Active Substance: ELDECALCITOL
     Indication: OSTEOPOROSIS
     Route: 048
     Dates: start: 20170516, end: 20170521
  4. NICARDIPINE HYDROCHLORIDE. [Suspect]
     Active Substance: NICARDIPINE HYDROCHLORIDE
     Indication: HYPERTENSION
     Route: 041
     Dates: start: 20170520, end: 20170520
  5. XARELTO [Suspect]
     Active Substance: RIVAROXABAN
     Indication: PULMONARY EMBOLISM
     Route: 048
     Dates: start: 20170516, end: 20170520
  6. DOPAMINE HYDROCHLORIDE. [Suspect]
     Active Substance: DOPAMINE HYDROCHLORIDE
     Indication: DISTRIBUTIVE SHOCK
     Route: 042
     Dates: start: 20170516, end: 20170517
  7. DOPAMINE HYDROCHLORIDE. [Suspect]
     Active Substance: DOPAMINE HYDROCHLORIDE
     Indication: DISTRIBUTIVE SHOCK
     Route: 041
     Dates: start: 20170521, end: 20170521
  8. DOBUPUM [Concomitant]
     Active Substance: DOBUTAMINE HYDROCHLORIDE
     Route: 041
     Dates: start: 20170521, end: 20170521
  9. METHOTREXATE. [Suspect]
     Active Substance: METHOTREXATE
     Indication: RHEUMATOID ARTHRITIS
     Route: 048
     Dates: start: 20170521, end: 20170521
  10. OXYGEN. [Concomitant]
     Active Substance: OXYGEN
     Route: 055
     Dates: start: 20170516, end: 20170521
  11. LYRICA [Suspect]
     Active Substance: PREGABALIN
     Indication: SPINAL COLUMN STENOSIS
     Route: 048
     Dates: start: 20170516, end: 20170521
  12. NOREPINEPHRINE. [Concomitant]
     Active Substance: NOREPINEPHRINE
     Route: 041
     Dates: start: 20170521, end: 20170521
  13. CLEACTOR [Suspect]
     Active Substance: MONTEPLASE
     Indication: PULMONARY EMBOLISM
     Route: 042
     Dates: start: 20170517, end: 20170517
  14. PREDONINE [Suspect]
     Active Substance: PREDNISOLONE
     Indication: RHEUMATOID ARTHRITIS
     Route: 048
     Dates: start: 20170516, end: 20170521

REACTIONS (3)
  - Pulmonary embolism [Fatal]
  - Drug ineffective [Unknown]
  - Deep vein thrombosis [Fatal]

NARRATIVE: CASE EVENT DATE: 20170521
